FAERS Safety Report 6783572-1 (Version None)
Quarter: 2010Q2

REPORT INFORMATION
  Report Type: 
  Country: None (occurrence: None)
  Receive Date: 20100622
  Receipt Date: 20100613
  Transmission Date: 20101027
  Serious: Yes (Hospitalization)
  Sender: FDA-Public Use
  Company Number: BG-ASTRAZENECA-2010SE27526

PATIENT
  Age: 69 Year
  Sex: Male

DRUGS (3)
  1. ATACAND [Suspect]
     Indication: HYPERTENSION
     Route: 048
     Dates: start: 20090525, end: 20090713
  2. ASPIRIN [Concomitant]
     Route: 048
     Dates: start: 20090525
  3. SOTALOL [Concomitant]
     Route: 048
     Dates: start: 20090525

REACTIONS (1)
  - BILIOPANCREATIC BYPASS [None]
